FAERS Safety Report 13668201 (Version 2)
Quarter: 2017Q3

REPORT INFORMATION
  Report Type: Spontaneous
  Country: US (occurrence: US)
  Receive Date: 20170620
  Receipt Date: 20170728
  Transmission Date: 20171127
  Serious: No
  Sender: FDA-Public Use
  Company Number: US-PFIZER INC-2017265443

PATIENT
  Age: 57 Year
  Sex: Female

DRUGS (1)
  1. XELJANZ XR [Suspect]
     Active Substance: TOFACITINIB CITRATE
     Dosage: 11 MG, UNK

REACTIONS (12)
  - Soft tissue swelling [Unknown]
  - Musculoskeletal stiffness [Unknown]
  - Skin mass [Unknown]
  - Oedema [Unknown]
  - Arthralgia [Unknown]
  - Breath sounds abnormal [Unknown]
  - Heart sounds abnormal [Unknown]
  - Tenderness [Unknown]
  - Joint effusion [Unknown]
  - Fatigue [Unknown]
  - Myalgia [Unknown]
  - Grip strength decreased [Unknown]
